FAERS Safety Report 11774161 (Version 7)
Quarter: 2016Q1

REPORT INFORMATION
  Report Type: Report from Study
  Country: US (occurrence: US)
  Receive Date: 20151124
  Receipt Date: 20160226
  Transmission Date: 20160525
  Serious: Yes (Hospitalization, Other)
  Sender: FDA-Public Use
  Company Number: US-PFIZER INC-2015391798

PATIENT
  Age: 18 Year
  Sex: Male
  Weight: 109 kg

DRUGS (11)
  1. CYCLOPHOSPHAMIDE. [Suspect]
     Active Substance: CYCLOPHOSPHAMIDE
     Indication: ANAPLASTIC LARGE CELL LYMPHOMA T- AND NULL-CELL TYPES
     Dosage: UNK, CYCLIC, (PROPHASE, COURSE B)
     Route: 042
     Dates: start: 20150903
  2. CYTARABINE. [Suspect]
     Active Substance: CYTARABINE
     Indication: ANAPLASTIC LARGE CELL LYMPHOMA T- AND NULL-CELL TYPES
     Dosage: UNK, CYCLIC (ON DAY 1, PRO-PHASE)
     Route: 037
     Dates: start: 20150903
  3. IFOSFAMIDE. [Suspect]
     Active Substance: IFOSFAMIDE
     Indication: ANAPLASTIC LARGE CELL LYMPHOMA T- AND NULL-CELL TYPES
     Dosage: UNK, CYCLIC, OVER 60 MIN ON DAY 1-5 (COURSE A)
     Route: 042
     Dates: start: 20150908
  4. HYDROCORTISONE ACETATE. [Concomitant]
     Active Substance: HYDROCORTISONE ACETATE
     Indication: ANAPLASTIC LARGE CELL LYMPHOMA T- AND NULL-CELL TYPES
     Dosage: 7.5-12MG, ON DAY 1 (PROPHASE)
     Route: 037
     Dates: start: 20150903, end: 20150903
  5. DOXORUBICIN HCL [Suspect]
     Active Substance: DOXORUBICIN HYDROCHLORIDE
     Indication: ANAPLASTIC LARGE CELL LYMPHOMA T- AND NULL-CELL TYPES
     Dosage: UNK, CYCLIC, ON DAYS 4 AND 5 (COURSE B)
     Route: 042
     Dates: start: 20151002
  6. METHOTREXATE [Suspect]
     Active Substance: METHOTREXATE
     Indication: ANAPLASTIC LARGE CELL LYMPHOMA T- AND NULL-CELL TYPES
     Dosage: UNK, CYCLIC (ON DAY 1 PRO-PHASE)
     Route: 037
     Dates: start: 20150903
  7. CYTARABINE. [Suspect]
     Active Substance: CYTARABINE
     Dosage: UNK, CYCLIC, OVER 1-30 MINUTES EVERY 12 HOURS ON DAYS 4, 5 (COURSE A)
     Route: 042
     Dates: start: 20150911
  8. DEXAMETHASONE. [Suspect]
     Active Substance: DEXAMETHASONE
     Indication: ANAPLASTIC LARGE CELL LYMPHOMA T- AND NULL-CELL TYPES
     Dosage: UNK, CYCLIC (PROPHASE, COURSE A, B)
     Route: 048
     Dates: start: 20150903
  9. VP-16 [Concomitant]
     Active Substance: ETOPOSIDE
     Indication: ANAPLASTIC LARGE CELL LYMPHOMA T- AND NULL-CELL TYPES
     Dosage: 100 MG/M2, CYCLIC, ON DAYS 4 AND 5 (COURSE A)
     Route: 042
     Dates: start: 20150911, end: 20150912
  10. CRIZOTINIB [Suspect]
     Active Substance: CRIZOTINIB
     Indication: ANAPLASTIC LARGE CELL LYMPHOMA T- AND NULL-CELL TYPES
     Dosage: 250 MG, CYCLIC (2X/DAY) ON DAY 1-21 (COURSE A, B)
     Route: 048
     Dates: start: 20150908, end: 20151013
  11. METHOTREXATE [Suspect]
     Active Substance: METHOTREXATE
     Dosage: UNK, CYCLIC, OVER 3 HOURS (COURSE A, B)
     Route: 042

REACTIONS (7)
  - Enterocolitis [Recovered/Resolved]
  - Stomatitis [Recovered/Resolved]
  - Lung infection [Recovered/Resolved]
  - Pleural effusion [Unknown]
  - Nausea [Recovered/Resolved]
  - Vomiting [Recovered/Resolved]
  - Hypokalaemia [Recovered/Resolved]

NARRATIVE: CASE EVENT DATE: 20151007
